FAERS Safety Report 9082444 (Version 1)
Quarter: 2013Q1

REPORT INFORMATION
  Report Type: Report from Study
  Country: US (occurrence: US)
  Receive Date: 20130130
  Receipt Date: 20130130
  Transmission Date: 20140127
  Serious: No
  Sender: FDA-Public Use
  Company Number: US-ABBOTT-12P-163-0966514-00

PATIENT
  Age: 85 Year
  Sex: Female

DRUGS (9)
  1. HUMIRA 40 MG/0.8 ML PEN [Suspect]
     Indication: RHEUMATOID ARTHRITIS
     Route: 058
  2. METOPROLOL [Concomitant]
     Indication: HYPERTENSION
  3. LISINOPRIL [Concomitant]
     Indication: HYPERTENSION
     Dosage: 1 TABLET DAILY
  4. SIMVASTATIN [Concomitant]
     Indication: BLOOD CHOLESTEROL INCREASED
  5. LEVOTHYROXINE [Concomitant]
     Indication: THYROIDECTOMY
     Dosage: IN MORNING
  6. TRIAZOLAM [Concomitant]
     Indication: INSOMNIA
     Dosage: AT BEDTIME
  7. VITAMIN D3 [Concomitant]
     Indication: PRODUCT USED FOR UNKNOWN INDICATION
     Dosage: 1 TABLET DAILY
  8. HYDROCODONE [Concomitant]
     Indication: ARTHRALGIA
     Dosage: 7.5/500MG 1 TAB EVERY 8 HOURS; PT. TRIED TO ONLY TAKE IT TWICE DAILY IF POSSIBLE
  9. PACERONE [Concomitant]
     Indication: ATRIAL FIBRILLATION
     Dates: start: 201104

REACTIONS (4)
  - Wrong technique in drug usage process [Recovered/Resolved]
  - Injection site pain [Recovered/Resolved]
  - Nervousness [Recovered/Resolved]
  - Incorrect dose administered [Unknown]
